FAERS Safety Report 4947857-3 (Version None)
Quarter: 2006Q1

REPORT INFORMATION
  Report Type: 
  Country: None (occurrence: None)
  Receive Date: 20060320
  Receipt Date: 20060106
  Transmission Date: 20060701
  Serious: Yes (Other)
  Sender: FDA-Public Use
  Company Number: FR-GILEAD-2006-0009082

PATIENT
  Age: 45 Year
  Sex: Female

DRUGS (6)
  1. TRUVADA [Suspect]
     Route: 048
     Dates: start: 20051201, end: 20051201
  2. REYATAZ [Concomitant]
     Indication: HIV INFECTION
  3. NORVIR [Concomitant]
     Indication: HIV INFECTION
  4. EPIVIR [Concomitant]
     Dates: end: 20051201
  5. PEGYLATED INTERFERON [Concomitant]
     Indication: HEPATITIS C
  6. RIBAVIRIN [Concomitant]
     Indication: HEPATITIS C

REACTIONS (3)
  - ERYTHEMA [None]
  - FACE OEDEMA [None]
  - PRURITUS GENERALISED [None]
